FAERS Safety Report 14700962 (Version 6)
Quarter: 2018Q2

REPORT INFORMATION
  Report Type: Report from Study
  Country: US (occurrence: US)
  Receive Date: 20180330
  Receipt Date: 20180531
  Transmission Date: 20180711
  Serious: Yes (Other)
  Sender: FDA-Public Use
  Company Number: US-CORCEPT THERAPEUTICS INC.-US-2018CRT000172

PATIENT

DRUGS (14)
  1. EFFEXOR XR [Concomitant]
     Active Substance: VENLAFAXINE HYDROCHLORIDE
     Indication: PRODUCT USED FOR UNKNOWN INDICATION
     Dosage: UNK
     Dates: end: 20180212
  2. KORLYM [Suspect]
     Active Substance: MIFEPRISTONE
     Dosage: 300 MG, UNK
     Route: 048
     Dates: start: 201804, end: 20180507
  3. CYTOMEL [Concomitant]
     Active Substance: LIOTHYRONINE SODIUM
     Indication: PRODUCT USED FOR UNKNOWN INDICATION
     Dosage: UNK
  4. SYNTHROID [Concomitant]
     Active Substance: LEVOTHYROXINE SODIUM
     Indication: PRODUCT USED FOR UNKNOWN INDICATION
     Dosage: UNK
  5. TOPIRAMATE. [Concomitant]
     Active Substance: TOPIRAMATE
     Indication: PRODUCT USED FOR UNKNOWN INDICATION
     Dosage: UNK
  6. GEODON [Concomitant]
     Active Substance: ZIPRASIDONE HYDROCHLORIDE\ZIPRASIDONE MESYLATE
     Indication: PRODUCT USED FOR UNKNOWN INDICATION
     Dosage: UNK
  7. LAMOTRIGINE. [Concomitant]
     Active Substance: LAMOTRIGINE
     Indication: PRODUCT USED FOR UNKNOWN INDICATION
     Dosage: UNK
  8. LAMICTAL [Concomitant]
     Active Substance: LAMOTRIGINE
     Indication: PRODUCT USED FOR UNKNOWN INDICATION
     Dosage: UNK
  9. LIDOCAINE. [Concomitant]
     Active Substance: LIDOCAINE
     Indication: PRODUCT USED FOR UNKNOWN INDICATION
     Dosage: UNK
     Route: 061
  10. VALIUM [Concomitant]
     Active Substance: DIAZEPAM
     Indication: PRODUCT USED FOR UNKNOWN INDICATION
     Dosage: UNK
  11. OMEPRAZOLE. [Concomitant]
     Active Substance: OMEPRAZOLE
     Indication: PRODUCT USED FOR UNKNOWN INDICATION
     Dosage: UNK
  12. KORLYM [Suspect]
     Active Substance: MIFEPRISTONE
     Indication: CUSHING^S SYNDROME
     Dosage: 300 MG, QD
     Route: 048
     Dates: start: 20180213, end: 20180331
  13. KORLYM [Suspect]
     Active Substance: MIFEPRISTONE
     Dosage: 600 MG, QD
     Dates: start: 20180508
  14. ADDERALL [Concomitant]
     Active Substance: AMPHETAMINE ASPARTATE\AMPHETAMINE SULFATE\DEXTROAMPHETAMINE SACCHARATE\DEXTROAMPHETAMINE SULFATE
     Indication: PRODUCT USED FOR UNKNOWN INDICATION
     Dosage: UNK

REACTIONS (40)
  - Erythema [Recovering/Resolving]
  - Chills [Recovering/Resolving]
  - Dizziness [Unknown]
  - Hypertension [Unknown]
  - Weight increased [Unknown]
  - Fatigue [Recovered/Resolved]
  - Arthralgia [Unknown]
  - Headache [Unknown]
  - Depressed mood [Not Recovered/Not Resolved]
  - Crying [Unknown]
  - Hypersomnia [Recovered/Resolved]
  - Panic reaction [Unknown]
  - Abdominal discomfort [Not Recovered/Not Resolved]
  - Hyperhidrosis [Unknown]
  - Feeling abnormal [Recovering/Resolving]
  - Potentiating drug interaction [Unknown]
  - Nausea [Not Recovered/Not Resolved]
  - Pain [Unknown]
  - Nervousness [Unknown]
  - Memory impairment [Not Recovered/Not Resolved]
  - Palpitations [Unknown]
  - Visual impairment [Unknown]
  - Oedema peripheral [Not Recovered/Not Resolved]
  - Thirst [Unknown]
  - Hallucination, visual [Unknown]
  - Dyskinesia [Unknown]
  - Agitation [Unknown]
  - Insomnia [Recovering/Resolving]
  - Back pain [Not Recovered/Not Resolved]
  - Hypopnoea [Unknown]
  - Tremor [Not Recovered/Not Resolved]
  - Agoraphobia [Recovering/Resolving]
  - Peripheral swelling [Unknown]
  - Feeling of body temperature change [Unknown]
  - Pollakiuria [Unknown]
  - Feeling hot [Recovering/Resolving]
  - Swelling face [Unknown]
  - Hyperhidrosis [Unknown]
  - Anxiety [Not Recovered/Not Resolved]
  - Vomiting [Unknown]

NARRATIVE: CASE EVENT DATE: 2018
